FAERS Safety Report 19974056 (Version 1)
Quarter: 2021Q4

REPORT INFORMATION
  Report Type: Spontaneous
  Country: US (occurrence: US)
  Receive Date: 20211020
  Receipt Date: 20211020
  Transmission Date: 20220303
  Serious: Yes (Life-Threatening)
  Sender: FDA-Public Use
  Company Number: None

PATIENT
  Age: 71 Year
  Sex: Male

DRUGS (1)
  1. PRIVIGEN [Suspect]
     Active Substance: HUMAN IMMUNOGLOBULIN G
     Indication: Myasthenia gravis
     Dosage: ?          OTHER FREQUENCY:EVERY 4 WEEKS;
     Route: 042
     Dates: start: 20211004, end: 20211004

REACTIONS (4)
  - Erythema [None]
  - Blister [None]
  - Swollen tongue [None]
  - Speech disorder [None]

NARRATIVE: CASE EVENT DATE: 20211004
